FAERS Safety Report 6994056-X (Version None)
Quarter: 2010Q3

REPORT INFORMATION
  Report Type: 
  Country: None (occurrence: None)
  Receive Date: 20100917
  Receipt Date: 20100909
  Transmission Date: 20110219
  Serious: Yes (Hospitalization, Other)
  Sender: FDA-Public Use
  Company Number: CA-ABBOTT-10P-028-0648995-02

PATIENT
  Sex: Male
  Weight: 64 kg

DRUGS (18)
  1. HUMIRA [Suspect]
     Indication: CROHN'S DISEASE
     Route: 058
     Dates: start: 20090107, end: 20100120
  2. HUMIRA [Suspect]
     Route: 058
     Dates: start: 20100602
  3. PREDNISONE [Concomitant]
     Indication: CROHN'S DISEASE
     Dates: end: 20081001
  4. PREDNISONE [Concomitant]
     Dates: start: 20091203, end: 20091216
  5. PREDNISONE [Concomitant]
     Dates: start: 20091217, end: 20091230
  6. PREDNISONE [Concomitant]
     Dates: start: 20100826, end: 20100905
  7. PREDNISONE [Concomitant]
     Dates: start: 20100907
  8. BUDESONIDE [Concomitant]
     Indication: CROHN'S DISEASE
     Dosage: PHYSICIAN ORDERED DISCONTINUATION
     Dates: end: 20081001
  9. AZATHIOPRINE [Concomitant]
     Indication: CROHN'S DISEASE
     Dates: start: 19960101, end: 20091202
  10. AZATHIOPRINE [Concomitant]
     Dates: start: 20091203
  11. CIPRO [Concomitant]
     Indication: CROHN'S DISEASE
     Dates: start: 20080301
  12. FLAGYL [Concomitant]
     Indication: ANAL ABSCESS
     Dates: start: 20091121, end: 20100701
  13. MORPHINE [Concomitant]
     Indication: PAIN
     Dates: start: 20080901
  14. MORPHINE [Concomitant]
     Indication: CROHN'S DISEASE
  15. SOLU-MEDROL [Concomitant]
     Indication: INTESTINAL OBSTRUCTION
     Dates: start: 20090813, end: 20090814
  16. SOLU-MEDROL [Concomitant]
     Indication: CROHN'S DISEASE
  17. DIAZEPAM [Concomitant]
     Indication: SEDATION
     Dates: start: 20091118, end: 20091118
  18. DIAZEPAM [Concomitant]
     Indication: SIGMOIDOSCOPY

REACTIONS (2)
  - ANAL ABSCESS [None]
  - FISTULA [None]
